FAERS Safety Report 9375733 (Version 1)
Quarter: 2013Q2

REPORT INFORMATION
  Report Type: Spontaneous
  Country: US (occurrence: US)
  Receive Date: 20130628
  Receipt Date: 20130628
  Transmission Date: 20140414
  Serious: Yes (Other)
  Sender: FDA-Public Use
  Company Number: US-NICOBRDEVP-2013-11322

PATIENT
  Age: 4 Year
  Sex: Female

DRUGS (17)
  1. PIPERACILLIN-TAZOBACTAM (UNKNOWN) [Suspect]
     Indication: PSEUDOMONAS INFECTION
     Dosage: UNK
     Route: 065
  2. PIPERACILLIN-TAZOBACTAM (UNKNOWN) [Suspect]
     Indication: PROPHYLAXIS
  3. PIPERACILLIN-TAZOBACTAM (UNKNOWN) [Suspect]
     Indication: CELLULITIS
  4. PIPERACILLIN-TAZOBACTAM (UNKNOWN) [Suspect]
     Indication: PERITONITIS
  5. CIPROFLOXACIN HYDROCHLORIDE (UNKNOWN) [Suspect]
     Indication: PSEUDOMONAL BACTERAEMIA
     Dosage: UNK
     Route: 065
  6. MEROPENEM (UNKNOWN) [Suspect]
     Indication: PSEUDOMONAL BACTERAEMIA
     Dosage: UNK
     Route: 065
  7. TOBRAMYCIN SULFATE (WATSON LABORATORIES) [Suspect]
     Indication: PSEUDOMONAL BACTERAEMIA
     Dosage: UNK
     Route: 065
  8. LEVOFLOXACIN (UNKNOWN) [Suspect]
     Indication: PSEUDOMONAS INFECTION
     Dosage: UNK
     Route: 065
  9. AZITHROMYCIN (UNKNOWN) [Suspect]
     Indication: PSEUDOMONAS INFECTION
     Dosage: DAILY
     Route: 048
  10. IMIPENEM [Suspect]
     Indication: PSEUDOMONAS INFECTION
  11. DAPTOMYCIN [Suspect]
     Indication: PSEUDOMONAS INFECTION
     Dosage: UNK
     Route: 065
  12. DAPTOMYCIN [Suspect]
     Indication: CELLULITIS
  13. DAPTOMYCIN [Suspect]
     Indication: PERITONITIS
  14. COLISTIN [Suspect]
     Indication: PNEUMONIA PSEUDOMONAS AERUGINOSA
     Dosage: UNK
     Route: 065
  15. TIGECYCLINE [Suspect]
     Indication: PNEUMONIA
     Dosage: UNK
     Route: 065
  16. FLUCONAZOLE [Concomitant]
     Indication: PROPHYLAXIS
     Dosage: UNK
     Route: 065
  17. VORICONAZOLE [Concomitant]
     Indication: PSEUDOMONAS INFECTION
     Dosage: UNK
     Route: 065

REACTIONS (2)
  - Pathogen resistance [Unknown]
  - Drug ineffective [Unknown]
